FAERS Safety Report 9295508 (Version 1)
Quarter: 2013Q2

REPORT INFORMATION
  Report Type: Spontaneous
  Country: US (occurrence: US)
  Receive Date: 20130517
  Receipt Date: 20130517
  Transmission Date: 20140414
  Serious: No
  Sender: FDA-Public Use
  Company Number: US-BANPHARM-20120417

PATIENT
  Age: 45 Year
  Sex: Female
  Weight: 72.57 kg

DRUGS (2)
  1. IBUPROFEN CAPSULES 200 MG [Suspect]
     Indication: PROCEDURAL PAIN
     Dosage: 1-3 DF,QD, PRN,
     Route: 048
  2. VITAMIN B12 [Concomitant]

REACTIONS (5)
  - Influenza like illness [Recovered/Resolved]
  - Somnolence [Recovered/Resolved]
  - Disturbance in attention [Recovered/Resolved]
  - Dyspepsia [Recovered/Resolved]
  - Malaise [Recovered/Resolved]
